FAERS Safety Report 18374600 (Version 1)
Quarter: 2020Q4

REPORT INFORMATION
  Report Type: Other
  Country: JP (occurrence: JP)
  Receive Date: 20201013
  Receipt Date: 20201013
  Transmission Date: 20210114
  Serious: Yes (Other)
  Sender: FDA-Public Use
  Company Number: JP-ROCHE-1630453

PATIENT
  Age: 13 Year
  Sex: Female
  Weight: 34 kg

DRUGS (22)
  1. NEORAL [Concomitant]
     Active Substance: CYCLOSPORINE
     Route: 048
     Dates: start: 20120227
  2. BLOPRESS [Concomitant]
     Active Substance: CANDESARTAN CILEXETIL
     Indication: NEPHROTIC SYNDROME
     Route: 048
  3. MONILAC [Suspect]
     Active Substance: LACTULOSE
     Indication: CONSTIPATION
     Dosage: MOST RECENT DOSE RECEIVED ON 07/JAN/2015
     Route: 048
     Dates: start: 2007
  4. NORVASC [Concomitant]
     Active Substance: AMLODIPINE BESYLATE
     Indication: HYPERTENSION
     Route: 048
  5. MYCOPHENOLATE MOFETIL. [Suspect]
     Active Substance: MYCOPHENOLATE MOFETIL
     Indication: NEPHROTIC SYNDROME
     Dosage: 750MG IN MORNING AND 500MG IN EVENING
     Route: 048
     Dates: start: 20120227
  6. RITUXIMAB. [Suspect]
     Active Substance: RITUXIMAB
     Indication: NEPHROTIC SYNDROME
     Route: 041
     Dates: start: 20120227, end: 20120227
  7. PREDONINE [Concomitant]
     Active Substance: PREDNISOLONE
     Route: 048
     Dates: start: 20160404, end: 20160612
  8. SOLU-MEDROL [Concomitant]
     Active Substance: METHYLPREDNISOLONE SODIUM SUCCINATE
     Indication: PREMEDICATION
     Route: 042
     Dates: start: 20140919, end: 20140919
  9. BLOPRESS [Concomitant]
     Active Substance: CANDESARTAN CILEXETIL
     Route: 048
     Dates: end: 20150107
  10. MYCOPHENOLATE MOFETIL. [Suspect]
     Active Substance: MYCOPHENOLATE MOFETIL
     Route: 048
     Dates: start: 20150107
  11. GASTER [Concomitant]
     Active Substance: FAMOTIDINE
     Indication: CHRONIC GASTRITIS
     Route: 048
     Dates: start: 2007, end: 20150107
  12. BLOPRESS [Concomitant]
     Active Substance: CANDESARTAN CILEXETIL
     Route: 048
     Dates: start: 20160609
  13. PREDONINE [Concomitant]
     Active Substance: PREDNISOLONE
     Indication: NEPHROTIC SYNDROME
     Dosage: 10-60MG
     Route: 048
     Dates: start: 200511, end: 20120529
  14. NEORAL [Concomitant]
     Active Substance: CYCLOSPORINE
     Route: 048
     Dates: start: 20051215, end: 20130729
  15. CALONAL [Concomitant]
     Active Substance: ACETAMINOPHEN
     Dosage: DOSE INTERVAL UNCERTAINTY
     Route: 048
     Dates: start: 2007, end: 20150107
  16. POLARAMINE [Concomitant]
     Active Substance: DEXCHLORPHENIRAMINE MALEATE
     Route: 048
     Dates: start: 20140919, end: 20140919
  17. BAKTAR [Concomitant]
     Active Substance: SULFAMETHOXAZOLE\TRIMETHOPRIM
     Indication: INFECTION PROPHYLAXIS
     Route: 048
     Dates: start: 20180228, end: 20190518
  18. RITUXIMAB. [Suspect]
     Active Substance: RITUXIMAB
     Route: 041
     Dates: start: 20140228, end: 20140228
  19. CALONAL [Concomitant]
     Active Substance: ACETAMINOPHEN
     Route: 048
     Dates: start: 20140929
  20. COLONEL [Concomitant]
     Active Substance: CALCIUM POLYCARBOPHIL
     Indication: IRRITABLE BOWEL SYNDROME
     Route: 048
     Dates: end: 20150107
  21. MYCOPHENOLATE MOFETIL. [Suspect]
     Active Substance: MYCOPHENOLATE MOFETIL
     Route: 048
     Dates: end: 201412
  22. RITUXIMAB. [Suspect]
     Active Substance: RITUXIMAB
     Dosage: 50MG/H AND MAXIMUM VELOCITY 200MG/H
     Route: 041
     Dates: start: 20140419, end: 20140419

REACTIONS (5)
  - Off label use [Unknown]
  - Upper respiratory tract inflammation [Recovered/Resolved]
  - Intentional product use issue [Unknown]
  - Agranulocytosis [Recovered/Resolved]
  - Herpes zoster [Recovered/Resolved]

NARRATIVE: CASE EVENT DATE: 20141215
